FAERS Safety Report 22385869 (Version 2)
Quarter: 2024Q3

REPORT INFORMATION
  Report Type: Spontaneous
  Country: US (occurrence: US)
  Receive Date: 20230530
  Receipt Date: 20240820
  Transmission Date: 20241016
  Serious: No
  Sender: PFIZER
  Company Number: US-PFIZER INC-PV202300093172

PATIENT
  Age: 54 Year
  Sex: Male

DRUGS (1)
  1. IBRANCE [Suspect]
     Active Substance: PALBOCICLIB
     Dosage: 125 MG ORAL ADMINISTRATION. 3 WEEKS ON AND 1 WEEK OFF
     Route: 048

REACTIONS (2)
  - Pain [Unknown]
  - Nasopharyngitis [Unknown]
